FAERS Safety Report 7219813-6 (Version None)
Quarter: 2011Q1

REPORT INFORMATION
  Report Type: 
  Country: None (occurrence: None)
  Receive Date: 20110111
  Receipt Date: 20110104
  Transmission Date: 20110831
  Serious: Yes (Other)
  Sender: FDA-Public Use
  Company Number: FR-JNJFOC-20110100825

PATIENT
  Age: 18 Year
  Sex: Female

DRUGS (3)
  1. REMICADE [Suspect]
     Indication: CROHN'S DISEASE
     Route: 042
  2. IMUREL [Concomitant]
     Indication: CROHN'S DISEASE
     Dosage: SINCE SUMMER 2008
  3. REMICADE [Suspect]
     Route: 042

REACTIONS (2)
  - MYOSITIS [None]
  - VASCULITIS [None]
